FAERS Safety Report 14980710 (Version 1)
Quarter: 2018Q2

REPORT INFORMATION
  Report Type: Spontaneous
  Country: NL (occurrence: NL)
  Receive Date: 20180606
  Receipt Date: 20180606
  Transmission Date: 20180711
  Serious: Yes (Other)
  Sender: FDA-Public Use
  Company Number: NL-GILEAD-2016-0233182

PATIENT
  Age: 37 Year
  Sex: Male
  Weight: 57.5 kg

DRUGS (3)
  1. GENVOYA [Suspect]
     Active Substance: COBICISTAT\ELVITEGRAVIR\EMTRICITABINE\TENOFOVIR ALAFENAMIDE FUMARATE
     Indication: HIV INFECTION
     Dosage: UNK
     Route: 065
     Dates: start: 20160425
  2. MULTIVITAMIN                       /00097801/ [Concomitant]
     Active Substance: VITAMINS
     Indication: VITAMIN D DEFICIENCY
     Dosage: UNK
     Dates: start: 2013
  3. LOPERAMIDE HCL [Concomitant]
     Active Substance: LOPERAMIDE HYDROCHLORIDE
     Indication: DIARRHOEA
     Dosage: 2 MG, UNK
     Dates: start: 20150105

REACTIONS (15)
  - Palpitations [Unknown]
  - Muscular weakness [Unknown]
  - Abdominal pain upper [Recovered/Resolved]
  - Renal pain [Recovered/Resolved]
  - Flatulence [Not Recovered/Not Resolved]
  - Diarrhoea [Recovered/Resolved]
  - Drug level decreased [Not Recovered/Not Resolved]
  - Nephrolithiasis [Unknown]
  - Abnormal dreams [Not Recovered/Not Resolved]
  - Feeling abnormal [Unknown]
  - Malaise [Unknown]
  - Therapeutic response unexpected [Unknown]
  - Muscle spasms [Recovered/Resolved]
  - Accidental overdose [Unknown]
  - Dizziness [Not Recovered/Not Resolved]

NARRATIVE: CASE EVENT DATE: 20160425
